FAERS Safety Report 5846981-0 (Version None)
Quarter: 2008Q3

REPORT INFORMATION
  Report Type: 
  Country: None (occurrence: None)
  Receive Date: 20080815
  Receipt Date: 20080807
  Transmission Date: 20090109
  Serious: Yes (Other)
  Sender: FDA-Public Use
  Company Number: GB-TEVA-175716ISR

PATIENT
  Sex: Female

DRUGS (3)
  1. CARBAMAZEPINE [Suspect]
  2. CLONAZEPAM [Suspect]
  3. ZONISAMIDE [Suspect]
     Route: 048

REACTIONS (2)
  - PREMATURE LABOUR [None]
  - STILLBIRTH [None]
